FAERS Safety Report 11455585 (Version 1)
Quarter: 2015Q3

REPORT INFORMATION
  Report Type: Spontaneous
  Country: US (occurrence: US)
  Receive Date: 20150903
  Receipt Date: 20150903
  Transmission Date: 20151125
  Serious: No
  Sender: FDA-Public Use
  Company Number: US-BEH-2014044087

PATIENT
  Sex: Female
  Weight: 114 kg

DRUGS (9)
  1. ALL OTHER THERAPEUTIC PRODUCTS [Concomitant]
     Active Substance: UNSPECIFIED INGREDIENT
  2. SODIUM CHLORIDE. [Concomitant]
     Active Substance: SODIUM CHLORIDE
  3. ALL OTHER THERAPEUTIC PRODUCTS [Concomitant]
     Active Substance: UNSPECIFIED INGREDIENT
  4. ZEMAIRA [Suspect]
     Active Substance: .ALPHA.1-PROTEINASE INHIBITOR HUMAN
     Indication: BRONCHIECTASIS
     Dosage: 1029 MG VIAL;0.08 ML/KG/MIN (9.3 ML/MIN)
     Route: 042
  5. ASPIRIN. [Concomitant]
     Active Substance: ASPIRIN
  6. EPIPEN [Concomitant]
     Active Substance: EPINEPHRINE
  7. IBUPROFEN. [Concomitant]
     Active Substance: IBUPROFEN
  8. ZEMAIRA [Suspect]
     Active Substance: .ALPHA.1-PROTEINASE INHIBITOR HUMAN
     Indication: BRONCHIECTASIS
     Dosage: 1029 MG VIAL;0.08 ML/KG/MIN (9.3 ML/MIN)
     Route: 042
  9. DIPHENHYDRAMINE. [Concomitant]
     Active Substance: DIPHENHYDRAMINE

REACTIONS (4)
  - Lacrimation increased [Unknown]
  - Eye discharge [Unknown]
  - Pruritus generalised [Unknown]
  - Nasal pruritus [Unknown]
